FAERS Safety Report 5646256-9 (Version None)
Quarter: 2008Q1

REPORT INFORMATION
  Report Type: 
  Country: None (occurrence: None)
  Receive Date: 20080301
  Receipt Date: 20080221
  Transmission Date: 20080703
  Serious: Yes (Other)
  Sender: FDA-Public Use
  Company Number: ZA-JNJFOC-20080205223

PATIENT

DRUGS (3)
  1. REMICADE [Suspect]
     Indication: DRUG EXPOSURE DURING PREGNANCY
     Route: 015
  2. CORTISONE [Concomitant]
  3. AZAPRESS [Concomitant]

REACTIONS (1)
  - FOETAL GROWTH RETARDATION [None]
